FAERS Safety Report 15795931 (Version 1)
Quarter: 2019Q1

REPORT INFORMATION
  Report Type: Spontaneous
  Country: FR (occurrence: FR)
  Receive Date: 20190107
  Receipt Date: 20190107
  Transmission Date: 20190417
  Serious: Yes (Hospitalization)
  Sender: FDA-Public Use
  Company Number: FR-MYLANLABS-2019M1000084

PATIENT
  Age: 42 Year
  Sex: Male
  Weight: 106 kg

DRUGS (3)
  1. SPIFEN [Suspect]
     Active Substance: IBUPROFEN
     Indication: PRODUCT USED FOR UNKNOWN INDICATION
     Dosage: PRISES PONCTUELLES
     Route: 048
     Dates: end: 20180610
  2. KETOPROFEN. [Suspect]
     Active Substance: KETOPROFEN
     Indication: MUSCULOSKELETAL PAIN
     Dosage: NON RENSEIGN?E
     Route: 048
     Dates: start: 20180603, end: 20180610
  3. VOLTARENE                          /00372303/ [Suspect]
     Active Substance: DICLOFENAC DIETHYLAMINE
     Indication: MUSCULOSKELETAL PAIN
     Dosage: NON RENSEIGN?E
     Route: 003
     Dates: start: 20180603, end: 20180610

REACTIONS (3)
  - Red blood cell count decreased [Recovered/Resolved]
  - Gastric ulcer [Recovered/Resolved]
  - Melaena [Recovered/Resolved]

NARRATIVE: CASE EVENT DATE: 20180610
